FAERS Safety Report 12091330 (Version 1)
Quarter: 2016Q1

REPORT INFORMATION
  Report Type: Spontaneous
  Country: US (occurrence: US)
  Receive Date: 20160218
  Receipt Date: 20160218
  Transmission Date: 20160526
  Serious: No
  Sender: FDA-Public Use
  Company Number: US-PFIZER INC-2016085411

PATIENT
  Age: 64 Year
  Sex: Female
  Weight: 70.3 kg

DRUGS (2)
  1. CYTOXIN [Suspect]
     Active Substance: CYCLOPHOSPHAMIDE
     Dosage: UNK UNK, WEEKLY (FOR 04 MONTHS)
  2. ADRIAMYCIN [Suspect]
     Active Substance: DOXORUBICIN HYDROCHLORIDE
     Dosage: UNK UNK, WEEKLY (FOR 04 MONTHS)

REACTIONS (7)
  - Alopecia [Unknown]
  - Madarosis [Unknown]
  - Malaise [Unknown]
  - Vomiting [Unknown]
  - Weight decreased [Unknown]
  - Pain [Unknown]
  - Nausea [Unknown]
